FAERS Safety Report 7750976-X (Version None)
Quarter: 2011Q3

REPORT INFORMATION
  Report Type: 
  Country: None (occurrence: None)
  Receive Date: 20110829
  Receipt Date: 20100716
  Transmission Date: 20111222
  Serious: No
  Sender: FDA-Public Use
  Company Number: WAES 1007USA02074

PATIENT
  Age: 51 Year
  Sex: Male

DRUGS (1)
  1. MAXALT [Suspect]
     Indication: MIGRAINE
     Dosage: 10 MG/DAILY/PO
     Route: 048

REACTIONS (1)
  - HEADACHE [None]
